FAERS Safety Report 23130754 (Version 1)
Quarter: 2023Q4

REPORT INFORMATION
  Report Type: Report from Study
  Country: CO (occurrence: CO)
  Receive Date: 20231031
  Receipt Date: 20231031
  Transmission Date: 20240109
  Serious: Yes (Death, Other)
  Sender: FDA-Public Use
  Company Number: CO-AstraZeneca-2023A244195

PATIENT
  Age: 193 Day
  Sex: Female
  Weight: 4 kg

DRUGS (1)
  1. SYNAGIS [Suspect]
     Active Substance: PALIVIZUMAB
     Indication: Respiratory disorder
     Dosage: 15MG/KG, MONTHLY
     Route: 030
     Dates: start: 20230815

REACTIONS (2)
  - Respiratory failure [Fatal]
  - Condition aggravated [Fatal]

NARRATIVE: CASE EVENT DATE: 20231017
